FAERS Safety Report 7289431-2 (Version None)
Quarter: 2011Q1

REPORT INFORMATION
  Report Type: 
  Country: None (occurrence: None)
  Receive Date: 20110211
  Receipt Date: 20110208
  Transmission Date: 20110831
  Serious: Yes (Other)
  Sender: FDA-Public Use
  Company Number: BR-PFIZER INC-2011027720

PATIENT
  Age: 36 Year
  Sex: Female
  Weight: 74 kg

DRUGS (2)
  1. CHAMPIX [Suspect]
     Indication: TOBACCO USER
     Dosage: UNK
     Route: 048
     Dates: start: 20110110, end: 20110101
  2. CHAMPIX [Suspect]
     Dosage: 0.5 MG, 2X/DAY (EVERY 12 HOURS)
     Route: 048
     Dates: start: 20110101

REACTIONS (2)
  - PALPITATIONS [None]
  - SUFFOCATION FEELING [None]
